FAERS Safety Report 6976196-4 (Version None)
Quarter: 2010Q3

REPORT INFORMATION
  Report Type: 
  Country: None (occurrence: None)
  Receive Date: 20100910
  Receipt Date: 20100830
  Transmission Date: 20110219
  Serious: Yes (Other)
  Sender: FDA-Public Use
  Company Number: DE-JNJFOC-20100900525

PATIENT
  Age: 15 Year
  Sex: Female
  Weight: 50 kg

DRUGS (5)
  1. REMICADE [Suspect]
     Indication: CROHN'S DISEASE
     Dosage: APPROXIMATELY 7 INFUSIONS
     Route: 042
  2. REMICADE [Suspect]
     Dosage: APPROXIMATELY 7 INFUSIONS
     Route: 042
  3. HYDROCORTISONE [Concomitant]
     Indication: PREMEDICATION
     Route: 042
  4. CALCILAC [Concomitant]
     Indication: OSTEOPENIA
  5. AZATHIOPRINE [Concomitant]
     Indication: IMMUNOSUPPRESSION

REACTIONS (7)
  - DYSPNOEA [None]
  - FACE OEDEMA [None]
  - HYPERHIDROSIS [None]
  - HYPOXIA [None]
  - INFUSION RELATED REACTION [None]
  - TACHYCARDIA [None]
  - VOMITING [None]
